FAERS Safety Report 8493272-8 (Version None)
Quarter: 2012Q3

REPORT INFORMATION
  Report Type: 
  Country: None (occurrence: None)
  Receive Date: 20120706
  Receipt Date: 20120627
  Transmission Date: 20120928
  Serious: Yes (Other)
  Sender: FDA-Public Use
  Company Number: US-ASTRAZENECA-2012SE31773

PATIENT
  Age: 57 Year
  Sex: Female

DRUGS (1)
  1. NEXIUM [Suspect]
     Route: 048

REACTIONS (6)
  - NEOPLASM MALIGNANT [None]
  - APHAGIA [None]
  - DRUG DOSE OMISSION [None]
  - ASTHMA [None]
  - ULCER HAEMORRHAGE [None]
  - BURNING SENSATION [None]
